FAERS Safety Report 16129621 (Version 1)
Quarter: 2019Q1

REPORT INFORMATION
  Report Type: Report from Study
  Country: CR (occurrence: CR)
  Receive Date: 20190328
  Receipt Date: 20190328
  Transmission Date: 20190418
  Serious: Yes (Other)
  Sender: FDA-Public Use
  Company Number: CR-SA-2019SA081388

PATIENT
  Age: 87 Year
  Sex: Female

DRUGS (2)
  1. CLOPIDOGREL BISULFATE. [Suspect]
     Active Substance: CLOPIDOGREL BISULFATE
     Dosage: UNK,(75 MG CLOPIDOGREL), QD
     Route: 048
     Dates: start: 1999, end: 201810
  2. ACETYLSALICYLIC ACID/CLOPIDOGREL BISULFATE [Suspect]
     Active Substance: ASPIRIN\CLOPIDOGREL BISULFATE
     Dosage: 1 DF,(1 ORAL TABLET OF 75 MG CLOPIDOGREL + 100 MG OF ACETYLSALICYLIC ACID),  QD
     Route: 048
     Dates: start: 201810

REACTIONS (5)
  - Abdominal pain upper [Unknown]
  - Stent placement [Unknown]
  - Myocardial infarction [Unknown]
  - Cardiac operation [Unknown]
  - Vascular graft [Unknown]

NARRATIVE: CASE EVENT DATE: 2001
